FAERS Safety Report 5161334-9 (Version None)
Quarter: 2006Q4

REPORT INFORMATION
  Report Type: 
  Country: None (occurrence: None)
  Receive Date: 20061121
  Receipt Date: 20061113
  Transmission Date: 20070319
  Serious: Yes (Other)
  Sender: FDA-Public Use
  Company Number: 2006BI013808

PATIENT
  Age: 23 Year
  Sex: Male
  Weight: 82 kg

DRUGS (1)
  1. NATALIZUMAB (NATALIZUMAB) [Suspect]
     Indication: MULTIPLE SCLEROSIS
     Dosage: 300 MG; QM; IV
     Route: 042

REACTIONS (12)
  - BLOOD PRESSURE DECREASED [None]
  - BODY TEMPERATURE DECREASED [None]
  - DRUG HYPERSENSITIVITY [None]
  - ERYTHEMA [None]
  - FALL [None]
  - INFUSION RELATED REACTION [None]
  - LIP SWELLING [None]
  - LOSS OF CONSCIOUSNESS [None]
  - PYREXIA [None]
  - RASH PRURITIC [None]
  - REFUSAL OF TREATMENT BY PATIENT [None]
  - URTICARIA GENERALISED [None]
